FAERS Safety Report 18560280 (Version 1)
Quarter: 2020Q4

REPORT INFORMATION
  Report Type: Spontaneous
  Country: US (occurrence: US)
  Receive Date: 20201130
  Receipt Date: 20201130
  Transmission Date: 20210114
  Serious: No
  Sender: FDA-Public Use
  Company Number: US-AMNEAL PHARMACEUTICALS-2020-AMRX-03070

PATIENT
  Sex: Female

DRUGS (1)
  1. FROVATRIPTAN SUCCINATE. [Suspect]
     Active Substance: FROVATRIPTAN SUCCINATE
     Indication: MIGRAINE
     Dosage: UNK
     Route: 065

REACTIONS (3)
  - Oropharyngeal pain [Recovering/Resolving]
  - Skin burning sensation [Recovering/Resolving]
  - Paraesthesia [Recovering/Resolving]
